FAERS Safety Report 17300500 (Version 1)
Quarter: 2020Q1

REPORT INFORMATION
  Report Type: Spontaneous
  Country: US (occurrence: US)
  Receive Date: 20200122
  Receipt Date: 20200122
  Transmission Date: 20200409
  Serious: No
  Sender: FDA-Public Use
  Company Number: US-ALLERGAN-1941736US

PATIENT
  Age: 66 Year
  Sex: Female

DRUGS (1)
  1. RESTASIS [Suspect]
     Active Substance: CYCLOSPORINE
     Indication: DRY EYE
     Dosage: 2 GTT, BID
     Route: 047
     Dates: start: 201908, end: 201908

REACTIONS (8)
  - Eye pain [Recovered/Resolved]
  - Product colour issue [Unknown]
  - Eye swelling [Unknown]
  - Product storage error [Unknown]
  - Contact lens intolerance [Not Recovered/Not Resolved]
  - Eye irritation [Recovered/Resolved]
  - Visual impairment [Unknown]
  - Vision blurred [Recovered/Resolved]

NARRATIVE: CASE EVENT DATE: 201908
